FAERS Safety Report 7332359-X (Version None)
Quarter: 2011Q1

REPORT INFORMATION
  Report Type: 
  Country: None (occurrence: None)
  Receive Date: 20110304
  Receipt Date: 20110225
  Transmission Date: 20110831
  Serious: Yes (Hospitalization)
  Sender: FDA-Public Use
  Company Number: A0916375A

PATIENT
  Sex: Female

DRUGS (1)
  1. IMITREX [Suspect]
     Dates: start: 20090112, end: 20101015

REACTIONS (1)
  - MALAISE [None]
